FAERS Safety Report 4352172-5 (Version None)
Quarter: 2004Q2

REPORT INFORMATION
  Report Type: 
  Country: None (occurrence: None)
  Receive Date: 20040428
  Receipt Date: 20040419
  Transmission Date: 20050107
  Serious: Yes (Hospitalization)
  Sender: FDA-Public Use
  Company Number: 2004-04-0925

PATIENT
  Age: 45 Year
  Sex: Female

DRUGS (1)
  1. TEMODAL [Suspect]
     Dosage: ORAL
     Route: 048
     Dates: start: 20040401, end: 20040401

REACTIONS (1)
  - CEREBRAL HAEMORRHAGE [None]
